FAERS Safety Report 6632360-5 (Version None)
Quarter: 2010Q1

REPORT INFORMATION
  Report Type: 
  Country: None (occurrence: None)
  Receive Date: 20100310
  Receipt Date: 20100302
  Transmission Date: 20100710
  Serious: Yes (Other)
  Sender: FDA-Public Use
  Company Number: 10-000319

PATIENT
  Sex: Female

DRUGS (1)
  1. LOESTRIN 24 FE [Suspect]
     Dosage: 20/1000UG, ORAL
     Route: 048
     Dates: start: 20090101

REACTIONS (1)
  - CONVULSION [None]
